FAERS Safety Report 13785390 (Version 1)
Quarter: 2017Q3

REPORT INFORMATION
  Report Type: Spontaneous
  Country: US (occurrence: US)
  Receive Date: 20170724
  Receipt Date: 20170724
  Transmission Date: 20171127
  Serious: Yes (Other)
  Sender: FDA-Public Use
  Company Number: None

PATIENT
  Age: 65 Year
  Sex: Male
  Weight: 96.75 kg

DRUGS (1)
  1. HYQVIA [Suspect]
     Active Substance: HUMAN IMMUNOGLOBULIN G\HYALURONIDASE RECOMBINANT HUMAN
     Indication: SELECTIVE IGG SUBCLASS DEFICIENCY
     Dosage: ?          OTHER DOSE:GM;OTHER FREQUENCY:Q4WEEKS;?
     Route: 058
     Dates: start: 20170621, end: 20170721

REACTIONS (2)
  - Conjunctivitis [None]
  - Oral herpes [None]

NARRATIVE: CASE EVENT DATE: 20170721
